FAERS Safety Report 16917357 (Version 4)
Quarter: 2019Q4

REPORT INFORMATION
  Report Type: Report from Study
  Country: AR (occurrence: AR)
  Receive Date: 20191015
  Receipt Date: 20191212
  Transmission Date: 20200122
  Serious: Yes (Hospitalization, Other)
  Sender: FDA-Public Use
  Company Number: AR-GLAXOSMITHKLINE-AR2019AMR182379

PATIENT
  Sex: Female

DRUGS (1)
  1. MEPOLIZUMAB [Suspect]
     Active Substance: MEPOLIZUMAB
     Indication: ASTHMA
     Dosage: UNK

REACTIONS (6)
  - Asthmatic crisis [Unknown]
  - Asthma [Unknown]
  - Fatigue [Unknown]
  - Muscle spasms [Unknown]
  - Agitation [Not Recovered/Not Resolved]
  - Pancreatic neoplasm [Unknown]
